FAERS Safety Report 4543292-0 (Version None)
Quarter: 2004Q4

REPORT INFORMATION
  Report Type: 
  Country: None (occurrence: None)
  Receive Date: 20041229
  Receipt Date: 20041221
  Transmission Date: 20050328
  Serious: No
  Sender: FDA-Public Use
  Company Number: 2004AP06404

PATIENT
  Age: 35 Year
  Sex: Male

DRUGS (1)
  1. DIPRIVAN [Suspect]

REACTIONS (2)
  - PROCEDURAL COMPLICATION [None]
  - RESPIRATORY ARREST [None]
